FAERS Safety Report 5956573-0 (Version None)
Quarter: 2008Q4

REPORT INFORMATION
  Report Type: 
  Country: None (occurrence: None)
  Receive Date: 20081103
  Receipt Date: 20080319
  Transmission Date: 20090506
  Serious: Yes (Other)
  Sender: FDA-Public Use
  Company Number: DSA_31623_2008

PATIENT
  Sex: Male
  Weight: 31.7518 kg

DRUGS (2)
  1. ATIVAN [Suspect]
     Indication: SEDATION
     Dosage: (6 MG TOTAL, GIVEN OVER THREE HOURS. ORAL)
     Route: 048
     Dates: start: 20080317, end: 20080317
  2. RISPERDAL [Concomitant]

REACTIONS (6)
  - DRUG INEFFECTIVE FOR UNAPPROVED INDICATION [None]
  - FATIGUE [None]
  - HALLUCINATION [None]
  - OFF LABEL USE [None]
  - OVERDOSE [None]
  - SOMNOLENCE [None]
